FAERS Safety Report 22394145 (Version 1)
Quarter: 2023Q2

REPORT INFORMATION
  Report Type: Spontaneous
  Country: AU (occurrence: AU)
  Receive Date: 20230601
  Receipt Date: 20230601
  Transmission Date: 20230722
  Serious: Yes (Other)
  Sender: FDA-Public Use
  Company Number: AU-SAMSUNG BIOEPIS-SB-2023-14569

PATIENT
  Sex: Male
  Weight: 51 kg

DRUGS (2)
  1. RENFLEXIS [Suspect]
     Active Substance: INFLIXIMAB-ABDA
     Indication: Crohn^s disease
     Dosage: STRENGTH: 10MG/KG;
     Route: 042
  2. RENFLEXIS [Suspect]
     Active Substance: INFLIXIMAB-ABDA
     Dosage: STRENGTH- 10MG/KG;
     Route: 042

REACTIONS (3)
  - Crohn^s disease [Not Recovered/Not Resolved]
  - Drug ineffective [Unknown]
  - Off label use [Unknown]
